FAERS Safety Report 19481594 (Version 3)
Quarter: 2021Q4

REPORT INFORMATION
  Report Type: Spontaneous
  Country: JP (occurrence: JP)
  Receive Date: 20210701
  Receipt Date: 20211213
  Transmission Date: 20220303
  Serious: Yes (Death, Hospitalization, Other)
  Sender: FDA-Public Use
  Company Number: JP-GLAXOSMITHKLINE-JP2021JPN130886

PATIENT
  Age: 88 Year
  Sex: Male
  Weight: 47.7 kg

DRUGS (22)
  1. LAMICTAL [Suspect]
     Active Substance: LAMOTRIGINE
     Indication: Epilepsy
     Dosage: 25 MG, QD
     Route: 048
     Dates: start: 20210320, end: 20210402
  2. LAMICTAL [Suspect]
     Active Substance: LAMOTRIGINE
     Dosage: 50 MG, QD
     Route: 048
     Dates: start: 20210403, end: 20210416
  3. LAMICTAL [Suspect]
     Active Substance: LAMOTRIGINE
     Dosage: 50 MG, BID
     Route: 048
     Dates: start: 20210417, end: 20210423
  4. LAMICTAL [Suspect]
     Active Substance: LAMOTRIGINE
     Dosage: 75 MG, BID
     Route: 048
     Dates: start: 20210424, end: 20210430
  5. LAMICTAL [Suspect]
     Active Substance: LAMOTRIGINE
     Dosage: 100 MG, BID
     Route: 048
     Dates: start: 20210501, end: 20210502
  6. LAMICTAL [Suspect]
     Active Substance: LAMOTRIGINE
     Dosage: 100MG/75MG, BID
     Route: 048
     Dates: start: 20210503, end: 20210503
  7. LAMICTAL [Suspect]
     Active Substance: LAMOTRIGINE
     Dosage: 75 MG, BID
     Route: 048
     Dates: start: 20210504, end: 20210509
  8. LAMICTAL [Suspect]
     Active Substance: LAMOTRIGINE
     Dosage: 100 MG, BID
     Route: 048
     Dates: start: 20210510, end: 20210514
  9. LAMICTAL [Suspect]
     Active Substance: LAMOTRIGINE
     Dosage: 100MG/75MG, QD
     Route: 048
     Dates: start: 20210515, end: 20210515
  10. LAMICTAL [Suspect]
     Active Substance: LAMOTRIGINE
     Dosage: 75 MG, BID
     Route: 048
     Dates: start: 20210516, end: 20210517
  11. LAMICTAL [Suspect]
     Active Substance: LAMOTRIGINE
     Dosage: 75 MG, QD
     Route: 048
     Dates: start: 20210518, end: 20210518
  12. CARBAMAZEPINE [Suspect]
     Active Substance: CARBAMAZEPINE
     Indication: Epilepsy
     Dosage: 200 MG, QD
     Route: 048
     Dates: start: 20210415, end: 20210430
  13. CARBAMAZEPINE [Suspect]
     Active Substance: CARBAMAZEPINE
     Dosage: 200 MG, BID, AFTER BREAKFAST AND DINNER
     Route: 048
     Dates: start: 20210501, end: 20210505
  14. E KEPPRA TABLETS [Concomitant]
     Dosage: 750 MG, BID
     Route: 048
     Dates: start: 20210409, end: 20210626
  15. LANSOPRAZOLE-OD TABLETS [Concomitant]
     Dosage: 15 MG, QD
     Route: 048
     Dates: end: 20210612
  16. PROBIOTICS NOS [Concomitant]
     Active Substance: PROBIOTICS NOS
     Dosage: 1 G, TID
     Route: 048
     Dates: start: 20210502, end: 20210527
  17. TOPINA TABLETS [Concomitant]
     Dosage: 50 MG, BID
     Route: 048
     Dates: start: 20210516, end: 20210626
  18. SILODOSIN OD TABLETS [Concomitant]
     Dosage: 4 MG, BID
     Route: 048
     Dates: end: 20210626
  19. PHENOBARBITAL [Concomitant]
     Active Substance: PHENOBARBITAL
     Indication: Epilepsy
     Dosage: 2 G, 1D
     Route: 045
     Dates: start: 20210407, end: 20210417
  20. PHENOBARBITAL [Concomitant]
     Active Substance: PHENOBARBITAL
     Dosage: 1 G, 1D
     Dates: start: 20210506, end: 20210514
  21. MIDAZOLAM HYDROCHLORIDE [Concomitant]
     Active Substance: MIDAZOLAM HYDROCHLORIDE
     Indication: Seizure
     Dosage: UNK
     Route: 041
     Dates: start: 20210319
  22. E KEPPRA FOR INTRAVENOUS INFUSION [Concomitant]
     Indication: Seizure
     Dosage: UNK
     Route: 041
     Dates: start: 20210319

REACTIONS (20)
  - Stevens-Johnson syndrome [Recovering/Resolving]
  - Toxic epidermal necrolysis [Recovering/Resolving]
  - Rash [Recovering/Resolving]
  - Condition aggravated [Fatal]
  - Malnutrition [Fatal]
  - Ocular hyperaemia [Recovering/Resolving]
  - Eye discharge [Recovering/Resolving]
  - Eyelid erosion [Recovering/Resolving]
  - Lip erosion [Recovering/Resolving]
  - Lip scab [Recovering/Resolving]
  - Lip haemorrhage [Recovering/Resolving]
  - Oral mucosa erosion [Recovering/Resolving]
  - Scab [Recovering/Resolving]
  - Mouth haemorrhage [Recovering/Resolving]
  - Erythema [Recovering/Resolving]
  - Genital erosion [Recovering/Resolving]
  - Skin erosion [Recovering/Resolving]
  - Pyrexia [Recovering/Resolving]
  - Enanthema [Recovering/Resolving]
  - Nikolsky^s sign [Recovering/Resolving]

NARRATIVE: CASE EVENT DATE: 20210501
